FAERS Safety Report 8222888-9 (Version None)
Quarter: 2012Q1

REPORT INFORMATION
  Report Type: 
  Country: None (occurrence: None)
  Receive Date: 20120320
  Receipt Date: 20120314
  Transmission Date: 20120608
  Serious: Yes (Death, Hospitalization, Other)
  Sender: FDA-Public Use
  Company Number: US-AMGEN-USASP2011047026

PATIENT
  Age: 58 Year
  Sex: Male
  Weight: 61 kg

DRUGS (6)
  1. ENBREL [Suspect]
     Indication: POLYMYOSITIS
     Dosage: 50 MG, QWK
     Dates: start: 20101101, end: 20101101
  2. PREDNISONE TAB [Concomitant]
     Dosage: UNK
  3. AZATHIOPRINE [Concomitant]
     Dosage: UNK
  4. ENBREL [Suspect]
     Indication: PRODUCT USED FOR UNKNOWN INDICATION
     Dosage: UNK UNK, ONE TIME DOSE
     Dates: start: 20101101, end: 20101101
  5. LEFLUNOMIDE [Concomitant]
     Dosage: UNK
  6. METHOTREXATE [Concomitant]
     Dosage: UNK

REACTIONS (45)
  - ENDOCARDITIS [None]
  - INFECTION [None]
  - CONTUSION [None]
  - VITELLO-INTESTINAL DUCT REMNANT [None]
  - BENIGN PROSTATIC HYPERPLASIA [None]
  - SKIN ULCER [None]
  - VASCULITIS NECROTISING [None]
  - ARTHRALGIA [None]
  - HEPATIC STEATOSIS [None]
  - FATIGUE [None]
  - DYSPNOEA [None]
  - STENOTROPHOMONAS TEST POSITIVE [None]
  - ERYTHEMA [None]
  - SKIN LESION [None]
  - ARRHYTHMIA [None]
  - PULMONARY ARTERIOPATHY [None]
  - GYNAECOMASTIA [None]
  - STAPHYLOCOCCUS TEST POSITIVE [None]
  - LUPUS-LIKE SYNDROME [None]
  - RED BLOOD CELL SEDIMENTATION RATE INCREASED [None]
  - HAEMANGIOMA OF LIVER [None]
  - PLEURAL EFFUSION [None]
  - PSEUDOMONAS TEST POSITIVE [None]
  - AUTOIMMUNE DISORDER [None]
  - BOVINE TUBERCULOSIS [None]
  - MUSCLE ATROPHY [None]
  - INFLAMMATION [None]
  - RASH [None]
  - ARTHRITIS INFECTIVE [None]
  - MYCOBACTERIUM AVIUM COMPLEX INFECTION [None]
  - MITRAL VALVE CALCIFICATION [None]
  - PAIN IN EXTREMITY [None]
  - TELANGIECTASIA [None]
  - ASTHENIA [None]
  - WEIGHT DECREASED [None]
  - RIGHT VENTRICULAR HYPERTROPHY [None]
  - SPLENITIS [None]
  - WHITE BLOOD CELL COUNT DECREASED [None]
  - RASH PRURITIC [None]
  - SEPSIS [None]
  - WHITE BLOOD CELL COUNT INCREASED [None]
  - MOBILITY DECREASED [None]
  - ARTERIOSCLEROSIS CORONARY ARTERY [None]
  - OEDEMA PERIPHERAL [None]
  - PAIN [None]
